FAERS Safety Report 5444199-7 (Version None)
Quarter: 2007Q3

REPORT INFORMATION
  Report Type: 
  Country: None (occurrence: None)
  Receive Date: 20070904
  Receipt Date: 20070816
  Transmission Date: 20080115
  Serious: Yes (Hospitalization, Other)
  Sender: FDA-Public Use
  Company Number: 2007US-09266

PATIENT
  Sex: Male

DRUGS (4)
  1. ISOPTIN SR [Suspect]
     Indication: DRUG USE FOR UNKNOWN INDICATION
     Dosage: 80 MG, 2 IN THE MORNING; 1 AT NIGHT, ORAL; 240 MG, IN THE MORNING, ORAL; 240 MG, WITH EVENING MEALS,
     Route: 048
     Dates: start: 19980101, end: 19981201
  2. ISOPTIN SR [Suspect]
     Indication: DRUG USE FOR UNKNOWN INDICATION
     Dosage: 80 MG, 2 IN THE MORNING; 1 AT NIGHT, ORAL; 240 MG, IN THE MORNING, ORAL; 240 MG, WITH EVENING MEALS,
     Route: 048
     Dates: start: 19981201, end: 20010101
  3. ISOPTIN SR [Suspect]
     Indication: DRUG USE FOR UNKNOWN INDICATION
     Dosage: 80 MG, 2 IN THE MORNING; 1 AT NIGHT, ORAL; 240 MG, IN THE MORNING, ORAL; 240 MG, WITH EVENING MEALS,
     Route: 048
     Dates: start: 20010101
  4. DAPATAB [Concomitant]

REACTIONS (6)
  - ASTHENIA [None]
  - BLOOD PRESSURE DECREASED [None]
  - BLOOD PRESSURE INADEQUATELY CONTROLLED [None]
  - EPISTAXIS [None]
  - FATIGUE [None]
  - PHARMACEUTICAL PRODUCT COMPLAINT [None]
